FAERS Safety Report 7606898-8 (Version None)
Quarter: 2011Q3

REPORT INFORMATION
  Report Type: 
  Country: None (occurrence: None)
  Receive Date: 20110713
  Receipt Date: 20110704
  Transmission Date: 20111222
  Serious: Yes (Hospitalization, Disabling, Congenital Anomaly)
  Sender: FDA-Public Use
  Company Number: DE-GLAXOSMITHKLINE-D0071917A

PATIENT
  Sex: Male
  Weight: 2.8 kg

DRUGS (4)
  1. VITAMIN B-12 [Concomitant]
     Indication: PROPHYLAXIS OF NEURAL TUBE DEFECT
     Route: 064
     Dates: start: 20100423, end: 20100729
  2. IODINE [Concomitant]
     Indication: PROPHYLAXIS OF NEURAL TUBE DEFECT
     Route: 064
     Dates: start: 20100423, end: 20100729
  3. FOLIC ACID [Concomitant]
     Indication: PROPHYLAXIS OF NEURAL TUBE DEFECT
     Route: 064
     Dates: start: 20100423, end: 20100729
  4. AVAMYS [Suspect]
     Indication: SEASONAL ALLERGY
     Route: 064
     Dates: start: 20100615, end: 20100715

REACTIONS (9)
  - GASTROSCHISIS [None]
  - SEPSIS NEONATAL [None]
  - MATERNAL EXPOSURE DURING PREGNANCY [None]
  - NEONATAL RESPIRATORY DISTRESS SYNDROME [None]
  - ANAEMIA NEONATAL [None]
  - DEVELOPMENTAL DELAY [None]
  - SMALL FOR DATES BABY [None]
  - ABDOMINAL COMPARTMENT SYNDROME [None]
  - THROMBOCYTOPENIA NEONATAL [None]
